FAERS Safety Report 5611130-0 (Version None)
Quarter: 2008Q1

REPORT INFORMATION
  Report Type: 
  Country: None (occurrence: None)
  Receive Date: 20080201
  Receipt Date: 20080128
  Transmission Date: 20080703
  Serious: Yes (Death)
  Sender: FDA-Public Use
  Company Number: US-GENENTECH-253785

PATIENT
  Age: 63 Year
  Sex: Male
  Weight: 85.1 kg

DRUGS (16)
  1. BEVACIZUMAB [Suspect]
     Indication: GLIOBLASTOMA MULTIFORME
     Dosage: 10 MG/KG, DAYS 1+15
     Route: 042
     Dates: start: 20071102, end: 20071116
  2. IRINOTECAN [Concomitant]
     Indication: GLIOBLASTOMA MULTIFORME
     Dosage: 125 MG/M2, DAYS 1+15
     Route: 042
     Dates: start: 20071102, end: 20071116
  3. ALLOPURINOL [Concomitant]
     Indication: DRUG USE FOR UNKNOWN INDICATION
     Dosage: 200 MG, QD
  4. ATENOLOL [Concomitant]
     Indication: DRUG USE FOR UNKNOWN INDICATION
     Dosage: 25 MG, QD
  5. DEXAMETHASONE TAB [Concomitant]
     Indication: DRUG USE FOR UNKNOWN INDICATION
     Dosage: 6 MG, QID
  6. AVODART [Concomitant]
     Indication: DRUG USE FOR UNKNOWN INDICATION
     Dosage: 0.5 MG, QD
  7. LOVENOX [Concomitant]
     Indication: PULMONARY EMBOLISM
     Dosage: 120 MG, QD
     Route: 058
  8. KEPPRA [Concomitant]
     Indication: PROPHYLAXIS
     Dosage: 500 MG, BID
  9. LIDOCAINE [Concomitant]
     Indication: ORAL PAIN
     Dosage: 15 ML, Q6H
     Route: 048
  10. M.V.I. [Concomitant]
     Indication: DRUG USE FOR UNKNOWN INDICATION
     Dosage: UNK, UNK
  11. ACEMANNAN [Concomitant]
     Indication: ORAL PAIN
     Dosage: 15 ML, QID
  12. METAMUCIL [Concomitant]
     Indication: DRUG USE FOR UNKNOWN INDICATION
     Dosage: 1 UNK, QD
  13. TERAZOSIN HCL [Concomitant]
     Indication: DRUG USE FOR UNKNOWN INDICATION
     Dosage: 1 MG, QD
  14. VALTREX [Concomitant]
     Indication: MUCOSAL INFLAMMATION
     Dosage: 1 G, TID
  15. MORPHINE [Concomitant]
     Indication: PAIN
  16. ANTIBIOTICS (NOT SPECIFIED) [Concomitant]
     Indication: DRUG USE FOR UNKNOWN INDICATION

REACTIONS (1)
  - DEATH [None]
